FAERS Safety Report 9939971 (Version 1)
Quarter: 2014Q1

REPORT INFORMATION
  Report Type: Report from Study
  Country: US (occurrence: US)
  Receive Date: 20140303
  Receipt Date: 20140303
  Transmission Date: 20141002
  Serious: No
  Sender: FDA-Public Use
  Company Number: US-ABBVIE-13P-163-1034510-00

PATIENT
  Age: 48 Year
  Sex: Female

DRUGS (6)
  1. HUMIRA [Suspect]
     Indication: RHEUMATOID ARTHRITIS
     Dates: start: 201101, end: 201103
  2. HUMIRA [Suspect]
     Dates: start: 201202
  3. HUMIRA [Suspect]
  4. HUMIRA [Suspect]
  5. MOBIC [Concomitant]
     Indication: PRODUCT USED FOR UNKNOWN INDICATION
     Dosage: 15 MG DAILY
  6. TYLENOL [Concomitant]
     Indication: PRODUCT USED FOR UNKNOWN INDICATION
     Dosage: 650 MG, EXTENDED RELEASE TWICE IN ONE DAY, AS NEEDED

REACTIONS (3)
  - Immune system disorder [Unknown]
  - Rheumatoid arthritis [Not Recovered/Not Resolved]
  - Costochondritis [Unknown]
